FAERS Safety Report 11264854 (Version 2)
Quarter: 2015Q3

REPORT INFORMATION
  Report Type: Report from Study
  Country: AU (occurrence: AU)
  Receive Date: 20150713
  Receipt Date: 20150803
  Transmission Date: 20151125
  Serious: Yes (Other)
  Sender: FDA-Public Use
  Company Number: AU-ROCHE-1607175

PATIENT
  Age: 63 Year
  Sex: Male

DRUGS (3)
  1. HEPARIN [Suspect]
     Active Substance: HEPARIN SODIUM
     Dosage: GIVEN POST ALTEPLASE INFUSION.
     Route: 042
  2. ALTEPLASE [Suspect]
     Active Substance: ALTEPLASE
     Indication: MYOCARDIAL INFARCTION
     Dosage: 10 MG OF RTPA (ALTEPLASE) FOLLOWED BY 50 MG OVER THE NEXT HOUR AND 40 MG OVER THE SUBSEQUENT 2 H.
     Route: 040
  3. HEPARIN [Suspect]
     Active Substance: HEPARIN SODIUM
     Indication: MYOCARDIAL INFARCTION
     Dosage: BEFORE INFUSION WITH ALTEPLASE
     Route: 042

REACTIONS (1)
  - Haemorrhagic infarction [Unknown]
